FAERS Safety Report 17018977 (Version 5)
Quarter: 2020Q2

REPORT INFORMATION
  Report Type: Report from Study
  Country: CN (occurrence: CN)
  Receive Date: 20191112
  Receipt Date: 20200605
  Transmission Date: 20200713
  Serious: Yes (Hospitalization)
  Sender: FDA-Public Use
  Company Number: CN-ROCHE-2460717

PATIENT
  Age: 70 Year
  Sex: Male
  Weight: 63.5 kg

DRUGS (36)
  1. ATEZOLIZUMAB. [Suspect]
     Active Substance: ATEZOLIZUMAB
     Indication: NON-SMALL CELL LUNG CANCER
     Dosage: DATE OF MOST RECENT DOSE OF ATEZOLIZUMAB: 02/AUG/2019 (1200 MG)
     Route: 042
     Dates: start: 20181206
  2. GLIMEPIRIDE. [Concomitant]
     Active Substance: GLIMEPIRIDE
     Route: 065
     Dates: start: 20181222
  3. AMBROXOL HYDROCHLORIDE [Concomitant]
     Active Substance: AMBROXOL HYDROCHLORIDE
     Route: 065
     Dates: start: 20191119, end: 20191122
  4. AMBROXOL HYDROCHLORIDE [Concomitant]
     Active Substance: AMBROXOL HYDROCHLORIDE
     Route: 065
     Dates: start: 20191029, end: 20191118
  5. HEPARIN SODIUM. [Concomitant]
     Active Substance: HEPARIN SODIUM
     Route: 065
     Dates: start: 20191031, end: 20191031
  6. LIDOCAINE HYDROCHLORIDE. [Concomitant]
     Active Substance: LIDOCAINE HYDROCHLORIDE
     Route: 065
     Dates: start: 20191029, end: 20191119
  7. JANUVIA [Concomitant]
     Active Substance: SITAGLIPTIN PHOSPHATE
     Indication: DIABETES MELLITUS
     Route: 065
     Dates: start: 20181222
  8. LEVOFLOXACIN. [Concomitant]
     Active Substance: LEVOFLOXACIN
     Route: 065
     Dates: start: 20191031, end: 20191118
  9. CEFOPERAZONE SODIUM AND TAZOBACTAM SODIUM [Concomitant]
     Active Substance: CEFOPERAZONE\TAZOBACTAM SODIUM
     Route: 065
     Dates: start: 20191101, end: 20191102
  10. PEDIATRIC COMPOUND AMINO ACID INJECTION 18AA I [Concomitant]
     Route: 065
     Dates: start: 20191029, end: 20191118
  11. DESLANOSIDE [Concomitant]
     Active Substance: DESLANOSIDE
     Route: 065
     Dates: start: 20191106, end: 20191106
  12. DESLORATADINE CITRATE DISODIUM [Concomitant]
     Active Substance: DESLORATADINE
     Indication: RASH
     Route: 065
     Dates: start: 20190306
  13. SODIUM CHLORIDE. [Concomitant]
     Active Substance: SODIUM CHLORIDE
     Route: 065
     Dates: start: 20191029, end: 20191118
  14. SODIUM RABEPRAZOLE [Concomitant]
     Active Substance: RABEPRAZOLE SODIUM
     Route: 065
     Dates: start: 20191111, end: 20191118
  15. METHYLPREDNISOLONE SODIUM SUCCINATE. [Concomitant]
     Active Substance: METHYLPREDNISOLONE SODIUM SUCCINATE
     Route: 042
     Dates: start: 20191106, end: 20191106
  16. PANTOPRAZOLE SODIUM. [Concomitant]
     Active Substance: PANTOPRAZOLE SODIUM
     Indication: DECREASED APPETITE
     Route: 048
     Dates: start: 20190818
  17. MEDIUM AND LONG CHAIN FAT EMULSION INJECTION (C6-24) [Concomitant]
     Route: 065
     Dates: start: 20191029, end: 20191107
  18. SODIUM CHLORIDE. [Concomitant]
     Active Substance: SODIUM CHLORIDE
     Route: 065
     Dates: start: 20191106, end: 20191115
  19. SODIUM POTASSIUM MAGNESIUM CALCIUM AND GLUCOSE [Concomitant]
     Route: 065
     Dates: start: 20191029, end: 20191118
  20. GLYCEROL [Concomitant]
     Active Substance: GLYCERIN
     Route: 065
     Dates: start: 20191109, end: 20191109
  21. GLUCOSE [Concomitant]
     Active Substance: DEXTROSE
     Route: 065
     Dates: start: 20191029, end: 20191118
  22. GLUCOSE AND SODIUM CHLORIDE [Concomitant]
     Active Substance: DEXTROSE\SODIUM CHLORIDE
     Route: 065
     Dates: start: 20191029, end: 20191118
  23. COMPOUND METHOXYPHENAMINE [Concomitant]
     Route: 065
     Dates: start: 20191107, end: 20191107
  24. BUDESONIDE. [Concomitant]
     Active Substance: BUDESONIDE
     Route: 055
     Dates: start: 20191101, end: 20191101
  25. CISPLATIN. [Suspect]
     Active Substance: CISPLATIN
     Indication: NON-SMALL CELL LUNG CANCER
     Dosage: ON DAY 1 OF UP TO FOUR 21-DAY CYCLES?SUBSEQUENT DOSES (120 MG) WERE RECEIVED ON 04/SEP/2018, 25/SEP/
     Route: 042
     Dates: start: 20180813
  26. DOCETAXEL. [Suspect]
     Active Substance: DOCETAXEL
     Indication: NON-SMALL CELL LUNG CANCER
     Dosage: ON DAY 1 OF UP TO FOUR 21-DAY CYCLES?SUBSEQUENT DOSES (120 MG) WERE RECEIVED ON 04/SEP/2018, 25/SEP/
     Route: 042
     Dates: start: 20180813
  27. COMPOUND EOSINOPHIL LACTOBACILLUS [BACILLUS SUBTILIS;ENTEROCOCCUS FAEC [Concomitant]
     Indication: DECREASED APPETITE
     Route: 065
     Dates: start: 20190818
  28. PANTOPRAZOLE SODIUM. [Concomitant]
     Active Substance: PANTOPRAZOLE SODIUM
     Route: 065
     Dates: start: 20191029, end: 20191118
  29. IBUPROFEN. [Concomitant]
     Active Substance: IBUPROFEN
     Route: 065
     Dates: start: 20191030, end: 20191030
  30. MOXIFLOXACIN HYDROCHLORIDE. [Concomitant]
     Active Substance: MOXIFLOXACIN HYDROCHLORIDE
     Route: 065
     Dates: start: 20191106, end: 20191115
  31. CEFTAZIDIME. [Concomitant]
     Active Substance: CEFTAZIDIME
     Route: 065
     Dates: start: 20191101, end: 20191115
  32. COMPOUND IPRATROPIUM BROMIDE [Concomitant]
     Active Substance: IPRATROPIUM BROMIDE
     Route: 065
     Dates: start: 20191029, end: 20191118
  33. POTASSIUM CHLORIDE. [Concomitant]
     Active Substance: POTASSIUM CHLORIDE
     Route: 065
     Dates: start: 20191106, end: 20191106
  34. FUROSEMIDE. [Concomitant]
     Active Substance: FUROSEMIDE
     Route: 065
     Dates: start: 20191106, end: 20191106
  35. LANSOPRAZOLE. [Concomitant]
     Active Substance: LANSOPRAZOLE
     Route: 065
     Dates: start: 20191106, end: 20191111
  36. BENZYLPENICILLIN SODIUM [Concomitant]
     Active Substance: PENICILLIN G SODIUM
     Route: 065
     Dates: start: 20191031, end: 20191031

REACTIONS (1)
  - Septic shock [Not Recovered/Not Resolved]

NARRATIVE: CASE EVENT DATE: 20191029
